FAERS Safety Report 16956245 (Version 2)
Quarter: 2021Q1

REPORT INFORMATION
  Report Type: Spontaneous
  Country: IN (occurrence: IN)
  Receive Date: 20191024
  Receipt Date: 20210119
  Transmission Date: 20210419
  Serious: Yes (Death, Hospitalization, Other)
  Sender: FDA-Public Use
  Company Number: IN-SUN PHARMACEUTICAL INDUSTRIES LTD-2019R1-224832

PATIENT
  Age: 29 Year
  Sex: Male

DRUGS (1)
  1. COTRIMOXAZOLE [Suspect]
     Active Substance: SULFAMETHOXAZOLE\TRIMETHOPRIM
     Indication: ABDOMINAL ABSCESS
     Dosage: UNK
     Route: 065

REACTIONS (9)
  - Dyspnoea [Unknown]
  - Pyrexia [Unknown]
  - Acute lung injury [Unknown]
  - Chest pain [Unknown]
  - Pulmonary alveolar haemorrhage [Unknown]
  - Multiple organ dysfunction syndrome [Fatal]
  - Headache [Unknown]
  - Respiratory failure [Unknown]
  - Fungaemia [Unknown]
